FAERS Safety Report 4382194-X (Version None)
Quarter: 2004Q2

REPORT INFORMATION
  Report Type: 
  Country: None (occurrence: None)
  Receive Date: 20040618
  Receipt Date: 20040618
  Transmission Date: 20050107
  Serious: No
  Sender: FDA-Public Use
  Company Number: None

PATIENT
  Age: 24 Year
  Sex: Female
  Weight: 58.9676 kg

DRUGS (2)
  1. LEXAPRO [Suspect]
     Indication: DEPRESSION
     Dosage: 10 MG 1 TIME A D ORAL
     Route: 048
     Dates: start: 20040608, end: 20040617
  2. LEXAPRO [Suspect]
     Indication: OBSESSIVE-COMPULSIVE DISORDER
     Dosage: 10 MG 1 TIME A D ORAL
     Route: 048
     Dates: start: 20040608, end: 20040617

REACTIONS (8)
  - AGITATION [None]
  - ANOREXIA [None]
  - DIZZINESS [None]
  - HEADACHE [None]
  - IRRITABILITY [None]
  - MEDICATION ERROR [None]
  - MOBILITY DECREASED [None]
  - NAUSEA [None]
